FAERS Safety Report 7898633-3 (Version None)
Quarter: 2011Q4

REPORT INFORMATION
  Report Type: 
  Country: None (occurrence: None)
  Receive Date: 20111107
  Receipt Date: 20111028
  Transmission Date: 20120403
  Serious: Yes (Death, Hospitalization, Disabling)
  Sender: FDA-Public Use
  Company Number: FI-CELGENEUS-055-50794-11061482

PATIENT
  Sex: Male

DRUGS (5)
  1. KEFEXIN [Concomitant]
     Dosage: 1500 MILLIGRAM
     Route: 048
     Dates: start: 20101214, end: 20101223
  2. VIDAZA [Suspect]
     Dosage: 75 MILLIGRAM/SQ. METER
     Route: 058
     Dates: start: 20101220, end: 20101223
  3. BISOPROLOL FUMARATE [Concomitant]
     Dosage: 2.5 MILLIGRAM
     Route: 048
     Dates: start: 20101208
  4. FURESIS [Concomitant]
     Dosage: 20 MILLIGRAM
     Route: 048
     Dates: start: 20101207
  5. ALLOPURINOL [Concomitant]
     Dosage: 300 MILLIGRAM
     Route: 048
     Dates: start: 20101214, end: 20101223

REACTIONS (7)
  - PULMONARY EMBOLISM [None]
  - MYELODYSPLASTIC SYNDROME [None]
  - REFRACTORY ANAEMIA WITH AN EXCESS OF BLASTS [None]
  - NEOPLASM PROGRESSION [None]
  - IMMOBILE [None]
  - DEATH [None]
  - ORGANISING PNEUMONIA [None]
